FAERS Safety Report 15212966 (Version 2)
Quarter: 2018Q3

REPORT INFORMATION
  Report Type: Spontaneous
  Country: JP (occurrence: JP)
  Receive Date: 20180730
  Receipt Date: 20180824
  Transmission Date: 20181010
  Serious: Yes (Other)
  Sender: FDA-Public Use
  Company Number: JP-TEVA-2018-JP-933891

PATIENT
  Age: 50 Year
  Sex: Female
  Weight: 70 kg

DRUGS (2)
  1. PACLITAXEL. [Suspect]
     Active Substance: PACLITAXEL
     Indication: PERITONEAL CARCINOMA METASTATIC
     Dosage: INITIALLY 6 COURSES FOLLOWED BY ADDITIONAL 3 COURSES POST?SURGERY AND 3 COURSES AFTER A RELAPSE
     Route: 065
  2. CARBOPLATIN. [Suspect]
     Active Substance: CARBOPLATIN
     Indication: PERITONEAL CARCINOMA METASTATIC
     Dosage: AUC 5 (610 MG/BODY) ON DAY 1 EVERY THREE WEEKS; INITIALLY 6 COURSES FOLLOWED BY ADDITIONAL 3 COUR...
     Route: 065

REACTIONS (1)
  - Anaphylactic shock [Unknown]
